FAERS Safety Report 6543917-4 (Version None)
Quarter: 2010Q1

REPORT INFORMATION
  Report Type: 
  Country: None (occurrence: None)
  Receive Date: 20100119
  Receipt Date: 20100119
  Transmission Date: 20100710
  Serious: No
  Sender: FDA-Public Use
  Company Number: None

PATIENT
  Age: 77 Year
  Sex: Female
  Weight: 54.4316 kg

DRUGS (1)
  1. ZICAM  ?  ? [Suspect]
     Indication: NASOPHARYNGITIS
     Dosage: SWAB IN THE NOSE AT FIRST SIGN OF C NASAL
     Route: 045
     Dates: start: 20090201, end: 20090203

REACTIONS (3)
  - AGEUSIA [None]
  - HYPOSMIA [None]
  - WEIGHT DECREASED [None]
